FAERS Safety Report 12380052 (Version 2)
Quarter: 2016Q2

REPORT INFORMATION
  Report Type: Report from Study
  Country: EC (occurrence: EC)
  Receive Date: 20160518
  Receipt Date: 20160531
  Transmission Date: 20160815
  Serious: Yes (Death)
  Sender: FDA-Public Use
  Company Number: EC-ROCHE-1758318

PATIENT
  Age: 51 Year
  Sex: Female

DRUGS (1)
  1. HERCEPTIN [Suspect]
     Active Substance: TRASTUZUMAB
     Indication: BREAST CANCER
     Route: 042
     Dates: start: 20141112, end: 20160415

REACTIONS (3)
  - Myocardial infarction [Fatal]
  - Dizziness [Fatal]
  - Vomiting [Fatal]

NARRATIVE: CASE EVENT DATE: 20160420
